FAERS Safety Report 9292386 (Version 2)
Quarter: 2013Q2

REPORT INFORMATION
  Report Type: Report from Study
  Country: JP (occurrence: JP)
  Receive Date: 20130516
  Receipt Date: 20130627
  Transmission Date: 20140414
  Serious: Yes (Death, Life-Threatening, Other)
  Sender: FDA-Public Use
  Company Number: JP-GENZYME-THYM-1003813

PATIENT
  Age: 25 Year
  Sex: Female
  Weight: 92 kg

DRUGS (20)
  1. THYMOGLOBULIN [Suspect]
     Indication: BONE MARROW CONDITIONING REGIMEN
     Dosage: 45 MG, QD
     Route: 065
     Dates: start: 20110728, end: 20110729
  2. THYMOGLOBULIN [Suspect]
     Dosage: 135 MG, QD
     Route: 065
     Dates: start: 20110730, end: 20110731
  3. FLUDARA [Suspect]
     Indication: HODGKIN^S DISEASE
     Dosage: UNK
     Route: 065
     Dates: end: 20110729
  4. MELPHALAN [Suspect]
     Indication: HODGKIN^S DISEASE
     Dosage: UNK
     Route: 065
     Dates: start: 20110728, end: 20110729
  5. SOLU MEDROL [Suspect]
     Indication: HODGKIN^S DISEASE
     Dosage: UNK
     Route: 065
     Dates: end: 20110809
  6. PROGRAF [Suspect]
     Indication: HODGKIN^S DISEASE
     Dosage: UNK
     Route: 065
     Dates: start: 20110728, end: 20110805
  7. FIRSTCIN [Concomitant]
     Indication: INFECTION PROPHYLAXIS
     Dosage: UNK
     Route: 065
     Dates: end: 20110806
  8. URSO [Concomitant]
     Indication: PROPHYLAXIS
     Dosage: UNK
     Route: 065
     Dates: end: 20110809
  9. BAKTAR [Concomitant]
     Indication: INFECTION PROPHYLAXIS
     Dosage: UNK
     Route: 065
     Dates: end: 20110729
  10. TARGOCID [Concomitant]
     Indication: INFECTION PROPHYLAXIS
     Dosage: UNK
     Route: 065
     Dates: start: 20110729, end: 20110803
  11. VFEND [Concomitant]
     Indication: INFECTION PROPHYLAXIS
     Dosage: UNK
     Route: 065
     Dates: start: 20110729, end: 20110803
  12. DENOSINE [Concomitant]
     Indication: INFECTION PROPHYLAXIS
     Dosage: UNK
     Route: 065
     Dates: start: 20110729, end: 20110731
  13. TAKEPRON [Concomitant]
     Indication: GASTRITIS PROPHYLAXIS
     Dosage: UNK
     Route: 065
     Dates: start: 20110729, end: 20110809
  14. VALTREX [Concomitant]
     Indication: INFECTION PROPHYLAXIS
     Dosage: UNK
     Route: 065
     Dates: end: 20110808
  15. CRAVIT [Concomitant]
     Indication: INFECTION PROPHYLAXIS
     Dosage: UNK
     Route: 065
     Dates: start: 20110730, end: 20110808
  16. ZYLORIC [Concomitant]
     Indication: INFECTION PROPHYLAXIS
     Dosage: UNK
     Route: 065
     Dates: start: 20110715, end: 20110804
  17. MAGMITT [Concomitant]
     Indication: CONSTIPATION PROPHYLAXIS
     Dosage: UNK
     Route: 065
     Dates: start: 20110711, end: 20110804
  18. HAPTOGLOBINS [Concomitant]
     Indication: PROPHYLAXIS
     Dosage: UNK
     Route: 065
     Dates: start: 20110801, end: 20110803
  19. RECOMODULIN [Concomitant]
     Indication: PROPHYLAXIS
     Dosage: UNK
     Route: 060
     Dates: start: 20110804, end: 20110804
  20. MORPHINE [Concomitant]
     Indication: NECK PAIN
     Dosage: UNK
     Route: 065
     Dates: start: 20110711, end: 20110808

REACTIONS (5)
  - Acute graft versus host disease in liver [Unknown]
  - Acute graft versus host disease in intestine [Unknown]
  - Drug-induced liver injury [Fatal]
  - Cardio-respiratory arrest [Fatal]
  - Ventricular fibrillation [Fatal]
